FAERS Safety Report 10796034 (Version 2)
Quarter: 2015Q1

REPORT INFORMATION
  Report Type: Spontaneous
  Country: US (occurrence: US)
  Receive Date: 20150216
  Receipt Date: 20150316
  Transmission Date: 20150721
  Serious: Yes (Other)
  Sender: FDA-Public Use
  Company Number: US-PFIZER INC-2015050655

PATIENT
  Age: 41 Year
  Sex: Female
  Weight: 102 kg

DRUGS (14)
  1. LYRICA [Suspect]
     Active Substance: PREGABALIN
     Indication: PAIN
     Dosage: 100 MG, 3X/DAY
     Route: 048
     Dates: start: 20140325
  2. SKELAXIN [Suspect]
     Active Substance: METAXALONE
     Indication: MYALGIA
     Dosage: 800 MG, 2X/DAY
     Route: 048
     Dates: start: 20140212
  3. IMITREX [Concomitant]
     Active Substance: SUMATRIPTAN\SUMATRIPTAN SUCCINATE
     Indication: HEADACHE
     Dosage: 100 MG, UNK (CAN TAKE UP TO 02 TABS IN 24 HOURS)
     Route: 048
     Dates: start: 20130318
  4. LOTRISONE [Concomitant]
     Active Substance: BETAMETHASONE DIPROPIONATE\CLOTRIMAZOLE
     Dosage: UNK, 2X/DAY (APPLY TO AFFECTED AREA)
     Dates: start: 20131122
  5. GLUCOPHAGE XR [Concomitant]
     Active Substance: METFORMIN HYDROCHLORIDE
     Dosage: 750 MG, 2X/DAY
     Route: 048
     Dates: start: 20141203
  6. RISPERDAL [Concomitant]
     Active Substance: RISPERIDONE
     Dosage: 0.25 MG, 2X/DAY
     Route: 048
     Dates: start: 20141031
  7. ZANAFLEX [Concomitant]
     Active Substance: TIZANIDINE HYDROCHLORIDE
     Dosage: 2 MG, UNK
     Route: 048
  8. MOBIC [Concomitant]
     Active Substance: MELOXICAM
     Dosage: 15 MG, UNK
     Route: 048
  9. SKELAXIN [Suspect]
     Active Substance: METAXALONE
     Indication: PLANTAR FASCIITIS
  10. BACLOFEN. [Concomitant]
     Active Substance: BACLOFEN
     Dosage: 10 MG, 2X/DAY (AS NEEDED)
     Route: 048
     Dates: start: 20140821
  11. SYNTHROID [Concomitant]
     Active Substance: LEVOTHYROXINE SODIUM
     Dosage: 75 ?G, 1X/DAY
     Route: 048
     Dates: start: 20140507
  12. OXYCONTIN [Concomitant]
     Active Substance: OXYCODONE HYDROCHLORIDE
     Dosage: 10 MG, 3X/DAY
     Route: 048
  13. OMNARIS [Concomitant]
     Active Substance: CICLESONIDE
     Dosage: UNK, 1X/DAY (50 MCG/ACT SUSPENSION 2 SPRAYS)
     Route: 045
     Dates: start: 20140801
  14. VALACYCLOVIR HCL [Concomitant]
     Active Substance: VALACYCLOVIR HYDROCHLORIDE
     Indication: ORAL HERPES
     Dosage: 2 MG, 2X/DAY
     Route: 048
     Dates: start: 20131122

REACTIONS (3)
  - Spinal disorder [Unknown]
  - Gallbladder disorder [Unknown]
  - Nausea [Unknown]

NARRATIVE: CASE EVENT DATE: 201406
